FAERS Safety Report 4775112-3 (Version None)
Quarter: 2005Q3

REPORT INFORMATION
  Report Type: 
  Country: None (occurrence: None)
  Receive Date: 20050919
  Receipt Date: 20050912
  Transmission Date: 20060218
  Serious: Yes (Other)
  Sender: FDA-Public Use
  Company Number: CHPA2005US02867

PATIENT
  Age: 67 Year
  Sex: Male
  Weight: 74.8 kg

DRUGS (5)
  1. CONTROL STEP 1 21MG (NCH)(NICOTINE) TRANS-THERAPEUTIC-SYSTEM [Suspect]
     Indication: SMOKING CESSATION THERAPY
     Dosage: 21 MG, QD, TRANSDERMAL
     Route: 062
  2. ANTIHYPERTENSIVES (NO INGREDIENTS/ SUBSTANCES) [Concomitant]
  3. ANTIDIABETICS (NO INGREDIENTS/ SUBSTANCES) [Concomitant]
  4. THYROID THERAPY (NO INGREDIENTS/SUBSTANCES) [Concomitant]
  5. CHOLESTEROL- AND TRIGLYCERIDE REDUCERS (NO INGREDIENTS/ SUBSTANCES) [Concomitant]

REACTIONS (5)
  - DYSSTASIA [None]
  - FALL [None]
  - MUSCULAR WEAKNESS [None]
  - TREATMENT NONCOMPLIANCE [None]
  - TREMOR [None]
